FAERS Safety Report 12773980 (Version 2)
Quarter: 2016Q4

REPORT INFORMATION
  Report Type: Spontaneous
  Country: GB (occurrence: GB)
  Receive Date: 20160923
  Receipt Date: 20161007
  Transmission Date: 20170207
  Serious: Yes (Life-Threatening, Hospitalization)
  Sender: FDA-Public Use
  Company Number: GB-ACCORD-044169

PATIENT
  Age: 33 Year
  Sex: Male
  Weight: 53.9 kg

DRUGS (2)
  1. SERTRALINE [Suspect]
     Active Substance: SERTRALINE HYDROCHLORIDE
     Indication: PRODUCT USED FOR UNKNOWN INDICATION
  2. QUETIAPINE. [Suspect]
     Active Substance: QUETIAPINE
     Indication: SCHIZOAFFECTIVE DISORDER
     Dosage: AT NIGHT (WAS ON INCREASING TITRATING DOSE OF 25 MG EVERY 3 DAYS FROM 150 MG NOCTE)
     Route: 048
     Dates: start: 20160413, end: 20160622

REACTIONS (1)
  - Neuroleptic malignant syndrome [Recovered/Resolved with Sequelae]

NARRATIVE: CASE EVENT DATE: 20160621
